FAERS Safety Report 9782306 (Version 2)
Quarter: 2013Q4

REPORT INFORMATION
  Report Type: Report from Study
  Country: CA (occurrence: CA)
  Receive Date: 20131226
  Receipt Date: 20131231
  Transmission Date: 20140711
  Serious: Yes (Other)
  Sender: FDA-Public Use
  Company Number: CA-JNJFOC-20131214562

PATIENT
  Age: 34 Year
  Sex: Male
  Weight: 65 kg

DRUGS (3)
  1. REMICADE [Suspect]
     Indication: COLITIS ULCERATIVE
     Route: 042
     Dates: start: 20130724, end: 20131031
  2. PLAQUENIL [Concomitant]
     Route: 048
  3. PREDNISONE [Concomitant]
     Route: 048
     Dates: start: 20130523

REACTIONS (3)
  - Myoclonus [Unknown]
  - Tremor [Unknown]
  - Central nervous system lesion [Unknown]
